FAERS Safety Report 8140950-6 (Version None)
Quarter: 2012Q1

REPORT INFORMATION
  Report Type: 
  Country: None (occurrence: None)
  Receive Date: 20120216
  Receipt Date: 20120209
  Transmission Date: 20120608
  Serious: Yes (Hospitalization, Other)
  Sender: FDA-Public Use
  Company Number: US-AMGEN-USASP2012008910

PATIENT
  Age: 52 Year
  Sex: Male

DRUGS (2)
  1. EPOGEN [Suspect]
     Indication: RENAL FAILURE CHRONIC
     Dosage: UNK
     Dates: start: 20100101
  2. HEPARIN [Concomitant]

REACTIONS (8)
  - VISUAL IMPAIRMENT [None]
  - LYMPHADENOPATHY [None]
  - DYSPHONIA [None]
  - PULMONARY MASS [None]
  - DYSPNOEA [None]
  - OCULAR HYPERAEMIA [None]
  - PSEUDOMONAS INFECTION [None]
  - CEREBROVASCULAR ACCIDENT [None]
